FAERS Safety Report 22064216 (Version 1)
Quarter: 2023Q1

REPORT INFORMATION
  Report Type: Spontaneous
  Country: US (occurrence: US)
  Receive Date: 20230306
  Receipt Date: 20230306
  Transmission Date: 20230417
  Serious: Yes (Hospitalization, Other)
  Sender: FDA-Public Use
  Company Number: US-GLAXOSMITHKLINE-US2023AMR033975

PATIENT

DRUGS (12)
  1. ADVAIR DISKUS [Suspect]
     Active Substance: FLUTICASONE PROPIONATE\SALMETEROL XINAFOATE
     Indication: Product used for unknown indication
     Dosage: 1 PUFF(S), BID(100/50 MCG)
     Route: 055
     Dates: end: 20230206
  2. CAPSAICIN\DICLOFENAC DIETHYLAMINE\MENTHOL\METHYL SALICYLATE [Suspect]
     Active Substance: CAPSAICIN\DICLOFENAC DIETHYLAMINE\MENTHOL\METHYL SALICYLATE
     Indication: Product used for unknown indication
     Dosage: 2 G( 4 TIMES A DAY)
     Route: 061
  3. METAMUCIL [Suspect]
     Active Substance: PLANTAGO SEED
     Indication: Product used for unknown indication
     Dosage: UNK, QD(2 TABLESPOON BY MOUTH)
     Route: 048
  4. SINGULAIR [Suspect]
     Active Substance: MONTELUKAST SODIUM
     Indication: Product used for unknown indication
     Dosage: 10 MG, QD(NIGHTLY)
     Route: 048
  5. SUDAFED [Suspect]
     Active Substance: PSEUDOEPHEDRINE HYDROCHLORIDE
     Indication: Nasal congestion
     Dosage: 30 MG, TID (EVERY 6 HRS)
     Route: 048
  6. ENTRESTO [Suspect]
     Active Substance: SACUBITRIL\VALSARTAN
     Indication: Cardiac failure
     Dosage: UNK
     Route: 048
     Dates: start: 20221028
  7. ALLEGRA [Suspect]
     Active Substance: FEXOFENADINE HYDROCHLORIDE
     Indication: Product used for unknown indication
     Dosage: 180 MG, QD
     Route: 048
  8. ADVIL [Suspect]
     Active Substance: IBUPROFEN
     Indication: Product used for unknown indication
     Dosage: 200 MG, QID
     Route: 048
  9. GLYCOLAX [Suspect]
     Active Substance: POLYETHYLENE GLYCOL 3350
     Indication: Product used for unknown indication
     Dosage: 17 G, BID
     Route: 048
  10. TORSEMIDE [Suspect]
     Active Substance: TORSEMIDE
     Indication: Product used for unknown indication
     Dosage: 40 MG, QD
     Route: 048
  11. ULTRAM [Suspect]
     Active Substance: TRAMADOL HYDROCHLORIDE
     Indication: Pain
     Dosage: 50 MG, BID
     Route: 048
  12. PREVACID [Suspect]
     Active Substance: LANSOPRAZOLE
     Indication: Product used for unknown indication
     Dosage: 30 MG, QD
     Route: 048
     Dates: start: 20160329

REACTIONS (15)
  - Ventricular extrasystoles [Unknown]
  - Cardiac failure [Unknown]
  - Arterial haemorrhage [Unknown]
  - Nausea [Unknown]
  - Weight fluctuation [Unknown]
  - Headache [Unknown]
  - Hypotension [Unknown]
  - Haemoglobin decreased [Unknown]
  - Haematoma [Unknown]
  - Discomfort [Unknown]
  - Contusion [Unknown]
  - Ecchymosis [Unknown]
  - Blood triglycerides increased [Unknown]
  - Haematocrit decreased [Unknown]
  - Red blood cell count decreased [Unknown]

NARRATIVE: CASE EVENT DATE: 20230125
